FAERS Safety Report 14775823 (Version 1)
Quarter: 2018Q2

REPORT INFORMATION
  Report Type: Spontaneous
  Country: US (occurrence: US)
  Receive Date: 20180418
  Receipt Date: 20180418
  Transmission Date: 20180711
  Serious: Yes (Other)
  Sender: FDA-Public Use
  Company Number: US-JNJFOC-20180413599

PATIENT
  Sex: Male

DRUGS (1)
  1. XARELTO [Suspect]
     Active Substance: RIVAROXABAN
     Indication: PRODUCT USED FOR UNKNOWN INDICATION
     Dosage: INITIATED 9 MONTHS PRIOR TO THE REPORT
     Route: 048
     Dates: start: 2017

REACTIONS (3)
  - Haemorrhage [Unknown]
  - Pancreatic disorder [Not Recovered/Not Resolved]
  - Memory impairment [Not Recovered/Not Resolved]
